FAERS Safety Report 6993386-5 (Version None)
Quarter: 2010Q3

REPORT INFORMATION
  Report Type: 
  Country: None (occurrence: None)
  Receive Date: 20100917
  Receipt Date: 20091214
  Transmission Date: 20110219
  Serious: No
  Sender: FDA-Public Use
  Company Number: US-ASTRAZENECA-2009SE31780

PATIENT
  Age: 67 Year
  Sex: Female

DRUGS (1)
  1. SEROQUEL [Suspect]
     Indication: SLEEP DISORDER
     Route: 048
     Dates: start: 20050101

REACTIONS (4)
  - INAPPROPRIATE AFFECT [None]
  - INSOMNIA [None]
  - NERVOUSNESS [None]
  - TENSION [None]
